FAERS Safety Report 6653439-8 (Version None)
Quarter: 2010Q1

REPORT INFORMATION
  Report Type: 
  Country: None (occurrence: None)
  Receive Date: 20100326
  Receipt Date: 20100315
  Transmission Date: 20100710
  Serious: No
  Sender: FDA-Public Use
  Company Number: US-JNJFOC-20100305206

PATIENT
  Sex: Female
  Weight: 92.99 kg

DRUGS (4)
  1. DURAGESIC-100 [Suspect]
     Indication: NERVE INJURY
     Route: 062
  2. DURAGESIC-100 [Suspect]
     Indication: INTERVERTEBRAL DISC DISORDER
     Route: 062
  3. XANAX [Concomitant]
     Indication: NEUROPATHY PERIPHERAL
     Route: 048
  4. NEURONTIN [Concomitant]
     Indication: NERVE INJURY
     Route: 048

REACTIONS (2)
  - EXPIRED DRUG ADMINISTERED [None]
  - WRONG TECHNIQUE IN DRUG USAGE PROCESS [None]
